FAERS Safety Report 21404197 (Version 1)
Quarter: 2022Q4

REPORT INFORMATION
  Report Type: Spontaneous
  Country: CN (occurrence: CN)
  Receive Date: 20221003
  Receipt Date: 20221003
  Transmission Date: 20230113
  Serious: Yes (Hospitalization, Other)
  Sender: FDA-Public Use
  Company Number: CN-TAKEDA-2022TUS069467

PATIENT

DRUGS (12)
  1. ANAGRELIDE [Suspect]
     Active Substance: ANAGRELIDE
     Indication: Essential thrombocythaemia
     Dosage: 1 MILLIGRAM, QD
     Route: 048
     Dates: start: 20210802, end: 20210928
  2. ANAGRELIDE [Suspect]
     Active Substance: ANAGRELIDE
     Dosage: 1.5 MILLIGRAM, TID
     Route: 048
     Dates: start: 20210929, end: 20220426
  3. ANAGRELIDE [Suspect]
     Active Substance: ANAGRELIDE
     Dosage: 2 MILLIGRAM, QID
     Route: 048
     Dates: start: 20220427, end: 20220605
  4. ANAGRELIDE [Suspect]
     Active Substance: ANAGRELIDE
     Dosage: 1.5 MILLIGRAM, TID
     Route: 048
     Dates: start: 20220612, end: 20220614
  5. ANAGRELIDE [Suspect]
     Active Substance: ANAGRELIDE
     Dosage: 2 MILLIGRAM, QID
     Route: 048
     Dates: start: 20220615, end: 20220616
  6. ANAGRELIDE [Suspect]
     Active Substance: ANAGRELIDE
     Dosage: 1.5 MILLIGRAM, TID
     Route: 048
     Dates: start: 20220617
  7. TICAGRELOR [Concomitant]
     Active Substance: TICAGRELOR
     Dosage: UNK
  8. ROSUVASTATIN [Concomitant]
     Active Substance: ROSUVASTATIN
     Dosage: UNK
  9. TELMISARTAN [Concomitant]
     Active Substance: TELMISARTAN
     Dosage: UNK
  10. Wu ling [Concomitant]
     Dosage: UNK
  11. OMEPRAZOLE [Concomitant]
     Active Substance: OMEPRAZOLE
     Dosage: UNK
  12. METOPROLOL SUCCINATE [Concomitant]
     Active Substance: METOPROLOL SUCCINATE
     Dosage: UNK

REACTIONS (1)
  - Acute myocardial infarction [Unknown]
